FAERS Safety Report 7569753-8 (Version None)
Quarter: 2011Q2

REPORT INFORMATION
  Report Type: 
  Country: None (occurrence: None)
  Receive Date: 20110620
  Receipt Date: 20110613
  Transmission Date: 20111010
  Serious: Yes (Hospitalization, Other)
  Sender: FDA-Public Use
  Company Number: JPI-P-015072

PATIENT
  Age: 17 Year
  Sex: Male

DRUGS (8)
  1. RISPERIDONE [Suspect]
     Indication: BIPOLAR DISORDER
     Dosage: (UNKNOWN AMOUNT IN A SUICIDE ATTEMPT)
     Dates: start: 20110524, end: 20110524
  2. RISPERIDONE [Suspect]
     Indication: SUICIDE ATTEMPT
     Dosage: (UNKNOWN AMOUNT IN A SUICIDE ATTEMPT)
     Dates: start: 20110524, end: 20110524
  3. XYREM [Suspect]
     Indication: SOMNOLENCE
     Dosage: SEE IMAGE
     Route: 048
     Dates: start: 20110406, end: 20110522
  4. XYREM [Suspect]
     Indication: SOMNOLENCE
     Dosage: SEE IMAGE
     Route: 048
     Dates: start: 20110101, end: 20110101
  5. XYREM [Suspect]
     Indication: SOMNOLENCE
     Dosage: SEE IMAGE
     Route: 048
     Dates: start: 20110610, end: 20110612
  6. XYREM [Suspect]
     Indication: SOMNOLENCE
     Dosage: SEE IMAGE
     Route: 048
     Dates: start: 20110311, end: 20110101
  7. XYREM [Suspect]
     Indication: SOMNOLENCE
     Dosage: SEE IMAGE
     Route: 048
     Dates: start: 20110523, end: 20110523
  8. LAMOTRIGINE [Concomitant]

REACTIONS (7)
  - FEELING DRUNK [None]
  - SUICIDE ATTEMPT [None]
  - AMNESIA [None]
  - VOMITING [None]
  - LOSS OF CONSCIOUSNESS [None]
  - DRUG EFFECT DECREASED [None]
  - INCORRECT DOSE ADMINISTERED [None]
